FAERS Safety Report 9336973 (Version 1)
Quarter: 2013Q2

REPORT INFORMATION
  Report Type: Spontaneous
  Country: KE (occurrence: KE)
  Receive Date: 20130607
  Receipt Date: 20130607
  Transmission Date: 20140414
  Serious: Yes (Hospitalization)
  Sender: FDA-Public Use
  Company Number: KE-GE HEALTHCARE MEDICAL DIAGNOSTICS-OMPQ-NO-1305S-0688

PATIENT
  Age: 63 Year
  Sex: Male

DRUGS (2)
  1. OMNIPAQUE [Suspect]
     Indication: PRODUCT USED FOR UNKNOWN INDICATION
     Route: 013
     Dates: start: 20130427, end: 20130427
  2. OMNIPAQUE [Suspect]
     Indication: DIAGNOSTIC PROCEDURE

REACTIONS (4)
  - Blood pressure decreased [Recovered/Resolved]
  - Pulse abnormal [Unknown]
  - Heart rate abnormal [Unknown]
  - Chills [Unknown]
